FAERS Safety Report 17717900 (Version 1)
Quarter: 2020Q2

REPORT INFORMATION
  Report Type: Spontaneous
  Country: DE (occurrence: DE)
  Receive Date: 20200428
  Receipt Date: 20200428
  Transmission Date: 20200714
  Serious: Yes (Other)
  Sender: FDA-Public Use
  Company Number: DE-TEVA-2020-DE-1226581

PATIENT
  Age: 54 Year
  Sex: Female
  Weight: 90 kg

DRUGS (2)
  1. QUETIAPINE ABZ 50 MG RETARDTABLETTEN [Suspect]
     Active Substance: QUETIAPINE
     Dates: start: 20160416
  2. ZOPICLON STADA 7.5 MG FILMTABLETTEN [Concomitant]
     Dosage: 7.5 MILLIGRAM DAILY;
     Dates: start: 20100418

REACTIONS (2)
  - Depression suicidal [Unknown]
  - Dry mouth [Unknown]

NARRATIVE: CASE EVENT DATE: 20160416
